FAERS Safety Report 7867900-1 (Version None)
Quarter: 2011Q4

REPORT INFORMATION
  Report Type: 
  Country: None (occurrence: None)
  Receive Date: 20111028
  Receipt Date: 20111021
  Transmission Date: 20120403
  Serious: Yes (Hospitalization, Other)
  Sender: FDA-Public Use
  Company Number: AU-MILLENNIUM PHARMACEUTICALS, INC.-2011-05070

PATIENT
  Age: 63 Year
  Sex: Male

DRUGS (1)
  1. VELCADE [Suspect]
     Indication: MULTIPLE MYELOMA
     Dosage: UNK
     Dates: start: 20100301

REACTIONS (4)
  - INFECTION REACTIVATION [None]
  - VITAMIN D DEFICIENCY [None]
  - FALL [None]
  - HERPES ZOSTER OPHTHALMIC [None]
